FAERS Safety Report 8024595-4 (Version None)
Quarter: 2011Q4

REPORT INFORMATION
  Report Type: 
  Country: None (occurrence: None)
  Receive Date: 20111130
  Receipt Date: 20110914
  Transmission Date: 20120403
  Serious: Yes (Other)
  Sender: FDA-Public Use
  Company Number: PHHY2011US63975

PATIENT
  Sex: Female

DRUGS (8)
  1. JANUVIA (SITAGLITIN PHOSPHATE) [Concomitant]
  2. NOVASIC [Concomitant]
  3. COQ10 (UBIDECARENONE) [Concomitant]
  4. ASPIRIN [Concomitant]
  5. TEKTURNA [Suspect]
     Dosage: 300 MG, DAILY
  6. AMLODIPINE BESYLATE [Concomitant]
  7. VITAMIN TAB [Concomitant]
  8. CO Q10 [Concomitant]

REACTIONS (3)
  - BLOOD PRESSURE INCREASED [None]
  - PRODUCT PHYSICAL ISSUE [None]
  - THERAPEUTIC RESPONSE DECREASED [None]
